FAERS Safety Report 10571613 (Version 1)
Quarter: 2014Q4

REPORT INFORMATION
  Report Type: Spontaneous
  Country: IT (occurrence: IT)
  Receive Date: 20141107
  Receipt Date: 20141107
  Transmission Date: 20150529
  Serious: Yes (Other)
  Sender: FDA-Public Use
  Company Number: IT-MYLANLABS-2014M1009450

PATIENT

DRUGS (4)
  1. HYDROCORTISONE. [Interacting]
     Active Substance: HYDROCORTISONE
     Dosage: 15 MG/M2/DAY
     Route: 065
  2. FLUDROCORTISONE [Interacting]
     Active Substance: FLUDROCORTISONE
     Dosage: 0.2 MG, QD
     Route: 065
  3. SODIUM CHLORIDE. [Concomitant]
     Active Substance: SODIUM CHLORIDE
     Indication: CONSTIPATION
     Dosage: 1 G, QD
     Route: 065
  4. MACROGOL 3350 [Suspect]
     Active Substance: POLYETHYLENE GLYCOL 3350
     Dosage: TWICE DAILY
     Route: 065

REACTIONS (2)
  - Adrenocortical insufficiency acute [Recovering/Resolving]
  - Drug interaction [Recovering/Resolving]
